FAERS Safety Report 5725345-4 (Version None)
Quarter: 2008Q2

REPORT INFORMATION
  Report Type: 
  Country: None (occurrence: None)
  Receive Date: 20080429
  Receipt Date: 20080416
  Transmission Date: 20081010
  Serious: Yes (Hospitalization)
  Sender: FDA-Public Use
  Company Number: S07-USA-06185-01

PATIENT
  Age: 85 Year
  Sex: Female

DRUGS (6)
  1. NAMENDA [Suspect]
     Indication: DEMENTIA
     Dosage: 10 MG BID PO
     Route: 048
     Dates: end: 20071130
  2. ARICEPT [Suspect]
     Indication: DEMENTIA
     Dates: end: 20071130
  3. CARAFATE [Concomitant]
  4. GLYBURIDE [Concomitant]
  5. NORVASC [Concomitant]
  6. KLONOPIN [Concomitant]

REACTIONS (8)
  - ACTIVITIES OF DAILY LIVING IMPAIRED [None]
  - BALANCE DISORDER [None]
  - DYSKINESIA [None]
  - HYPERPROTEINAEMIA [None]
  - MYOCLONUS [None]
  - ROTATOR CUFF SYNDROME [None]
  - TREMOR [None]
  - URINARY TRACT INFECTION [None]
